FAERS Safety Report 18995031 (Version 8)
Quarter: 2022Q4

REPORT INFORMATION
  Report Type: Spontaneous
  Country: JP (occurrence: JP)
  Receive Date: 20210311
  Receipt Date: 20221228
  Transmission Date: 20230113
  Serious: Yes (Hospitalization, Other)
  Sender: FDA-Public Use
  Company Number: JP-JAZZ-2021-JP-004325

PATIENT
  Age: 7 Year
  Sex: Female
  Weight: 17 kg

DRUGS (5)
  1. DEFITELIO [Suspect]
     Active Substance: DEFIBROTIDE SODIUM
     Indication: Venoocclusive liver disease
     Dosage: 25 MG/KG DAILY
     Route: 042
     Dates: start: 20201118, end: 20201209
  2. DEFITELIO [Suspect]
     Active Substance: DEFIBROTIDE SODIUM
     Dosage: 25 MG/KG DAILY
     Route: 042
     Dates: start: 20210106, end: 20210110
  3. DEFITELIO [Suspect]
     Active Substance: DEFIBROTIDE SODIUM
     Dosage: 25 MG/KG DAILY
     Route: 042
     Dates: start: 20210112, end: 20210114
  4. DEFITELIO [Suspect]
     Active Substance: DEFIBROTIDE SODIUM
     Dosage: 25 MG/KG DAILY
     Route: 042
     Dates: start: 20210115, end: 20210128
  5. HAPTOGLOBIN [Concomitant]
     Indication: Haemolysis
     Dosage: UNK
     Dates: start: 20201125

REACTIONS (8)
  - Septic shock [Recovering/Resolving]
  - Pericardial effusion [Recovering/Resolving]
  - Thrombotic microangiopathy [Unknown]
  - Haemoglobinuria [Unknown]
  - Gastrointestinal haemorrhage [Not Recovered/Not Resolved]
  - Graft versus host disease [Not Recovered/Not Resolved]
  - Epistaxis [Recovering/Resolving]
  - Mouth haemorrhage [Recovering/Resolving]

NARRATIVE: CASE EVENT DATE: 20200101
